FAERS Safety Report 5854736-6 (Version None)
Quarter: 2008Q3

REPORT INFORMATION
  Report Type: 
  Country: None (occurrence: None)
  Receive Date: 20080822
  Receipt Date: 20071216
  Transmission Date: 20090109
  Serious: No
  Sender: FDA-Public Use
  Company Number: US-ABBOTT-07P-163-0431348-00

PATIENT
  Age: 51 Year

DRUGS (3)
  1. SYNTHROID [Suspect]
     Indication: THYROIDECTOMY
     Dates: start: 20020101
  2. SYNTHROID [Suspect]
     Indication: THYROIDECTOMY
  3. SYNTHROID [Suspect]
     Indication: THYROIDECTOMY
     Dates: start: 20020101

REACTIONS (1)
  - WEIGHT DECREASED [None]
